FAERS Safety Report 9669518 (Version 1)
Quarter: 2013Q4

REPORT INFORMATION
  Report Type: Spontaneous
  Country: US (occurrence: US)
  Receive Date: 20131105
  Receipt Date: 20131105
  Transmission Date: 20140711
  Serious: No
  Sender: FDA-Public Use
  Company Number: US-PFIZER INC-2013314630

PATIENT
  Age: 58 Year
  Sex: Male
  Weight: 113 kg

DRUGS (2)
  1. VENLAFAXINE HCL [Suspect]
     Indication: ANGER
     Dosage: 75 MG, 3X/DAY
  2. VENLAFAXINE HCL [Suspect]
     Indication: OBSESSIVE-COMPULSIVE DISORDER

REACTIONS (2)
  - Off label use [Unknown]
  - Drug ineffective for unapproved indication [Unknown]
